FAERS Safety Report 8773977 (Version 2)
Quarter: 2012Q4

REPORT INFORMATION
  Report Type: 
  Country: US (occurrence: US)
  Receive Date: 20120904
  Receipt Date: 20121115
  Transmission Date: 20130627
  Serious: No
  Sender: FDA-Public Use
  Company Number: US-ELI_LILLY_AND_COMPANY-US201208008755

PATIENT
  Sex: Female

DRUGS (2)
  1. CYMBALTA [Suspect]
     Indication: FIBROMYALGIA
     Dosage: 120 mg, qd
  2. EXCEDRIN [Concomitant]
     Indication: SINUS HEADACHE
     Dosage: UNK, prn

REACTIONS (7)
  - Diabetes mellitus [Unknown]
  - Blister [Unknown]
  - Inflammatory marker increased [Unknown]
  - Joint injury [Unknown]
  - Heat rash [Unknown]
  - Flushing [Unknown]
  - Pruritus [Unknown]
